FAERS Safety Report 8291088-9 (Version None)
Quarter: 2012Q2

REPORT INFORMATION
  Report Type: 
  Country: None (occurrence: None)
  Receive Date: 20120417
  Receipt Date: 20110718
  Transmission Date: 20120825
  Serious: No
  Sender: FDA-Public Use
  Company Number: US-ASTRAZENECA-2011SE34338

PATIENT
  Age: 50 Year
  Sex: Male

DRUGS (5)
  1. NEXIUM [Suspect]
     Indication: GASTROOESOPHAGEAL REFLUX DISEASE
     Route: 048
     Dates: start: 20080101
  2. NEXIUM [Suspect]
     Indication: HIATUS HERNIA
     Route: 048
     Dates: start: 20080101
  3. ORUDIS [Concomitant]
     Indication: OSTEOARTHRITIS
  4. VALACYCLOVIR [Concomitant]
  5. KETOPROFEN [Concomitant]

REACTIONS (2)
  - HEPATIC STEATOSIS [None]
  - HEPATIC ENZYME INCREASED [None]
